FAERS Safety Report 5041521-0 (Version None)
Quarter: 2006Q2

REPORT INFORMATION
  Report Type: 
  Country: None (occurrence: None)
  Receive Date: 20060627
  Receipt Date: 20060609
  Transmission Date: 20061013
  Serious: Yes (Other)
  Sender: FDA-Public Use
  Company Number: DSA_28331_2006

PATIENT
  Sex: Female

DRUGS (5)
  1. ATIVAN [Suspect]
     Indication: INSOMNIA
     Dosage: 1 MG BID PO
     Route: 048
     Dates: start: 19860101
  2. INDERAL LA [Suspect]
     Indication: ANXIETY
     Dosage: 60 MG Q DAY PO
     Route: 048
     Dates: start: 20051212, end: 20051201
  3. INDERAL [Suspect]
     Indication: ANXIETY
     Dosage: 10 MG QID PO
     Route: 048
     Dates: start: 20051201, end: 20051201
  4. INDERAL [Suspect]
     Indication: ANXIETY
     Dosage: 10 MG TID PO
     Route: 048
     Dates: start: 20051201
  5. PROPRANOLOL HYDROCHLORIDE [Suspect]
     Indication: ANXIETY
     Dosage: DF Q DAY PO
     Route: 048
     Dates: start: 20051201

REACTIONS (12)
  - ABNORMAL DREAMS [None]
  - DEPRESSION [None]
  - DIZZINESS [None]
  - DRUG INTERACTION [None]
  - DYSPNOEA [None]
  - INSOMNIA [None]
  - NAUSEA [None]
  - PAIN IN EXTREMITY [None]
  - PALPITATIONS [None]
  - TREMOR [None]
  - VERTIGO [None]
  - VOMITING [None]
